FAERS Safety Report 19299261 (Version 3)
Quarter: 2022Q2

REPORT INFORMATION
  Report Type: Spontaneous
  Country: IN (occurrence: IN)
  Receive Date: 20210524
  Receipt Date: 20220628
  Transmission Date: 20220720
  Serious: Yes (Other)
  Sender: FDA-Public Use
  Company Number: IN-PFIZER INC-2021072734

PATIENT
  Age: 63 Year
  Sex: Female

DRUGS (3)
  1. PALBOCICLIB [Suspect]
     Active Substance: PALBOCICLIB
     Indication: Breast cancer metastatic
     Dosage: 125 MG, 1X/DAY
     Route: 048
     Dates: start: 20200903
  2. FULVESTRANT [Concomitant]
     Active Substance: FULVESTRANT
     Dosage: 250 MG, MONTHLY
     Route: 030
  3. CCM [Concomitant]
     Dosage: 1 DF, ALTERNATE DAY

REACTIONS (10)
  - Obesity [Unknown]
  - Body mass index increased [Unknown]
  - Blood pressure increased [Unknown]
  - Neoplasm progression [Unknown]
  - Blood pressure fluctuation [Unknown]
  - Back pain [Unknown]
  - Constipation [Unknown]
  - Heart rate increased [Unknown]
  - Insomnia [Unknown]
  - Laboratory test abnormal [Unknown]
